FAERS Safety Report 6475533-7 (Version None)
Quarter: 2009Q4

REPORT INFORMATION
  Report Type: 
  Country: None (occurrence: None)
  Receive Date: 20091204
  Receipt Date: 20091202
  Transmission Date: 20100525
  Serious: Yes (Death, Hospitalization)
  Sender: FDA-Public Use
  Company Number: PHHY2009MX42952

PATIENT
  Age: 87 Year
  Sex: Male

DRUGS (1)
  1. STALEVO 100 [Suspect]
     Indication: PARKINSON'S DISEASE
     Dosage: 3 TABLETS (150/37.5/200MG) DAILY
     Route: 048
     Dates: start: 20080615

REACTIONS (2)
  - ASPIRATION BRONCHIAL [None]
  - PNEUMONIA [None]
